FAERS Safety Report 17455087 (Version 2)
Quarter: 2020Q2

REPORT INFORMATION
  Report Type: Spontaneous
  Country: IT (occurrence: IT)
  Receive Date: 20200225
  Receipt Date: 20200401
  Transmission Date: 20200713
  Serious: Yes (Other)
  Sender: FDA-Public Use
  Company Number: IT-TEVA-2020-IT-1191087

PATIENT
  Age: 52 Year
  Sex: Female
  Weight: 55 kg

DRUGS (7)
  1. PANTORC 40 MG POLVERE PER SOLUZIONE INIETTABILE [Concomitant]
     Indication: ANTACID THERAPY
     Dosage: 40MG
     Route: 042
     Dates: start: 20200123
  2. TRIMETON 10 MG/1 ML SOLUZIONE INIETTABILE [Concomitant]
     Indication: ANTIALLERGIC THERAPY
     Dosage: 10MG
     Route: 042
     Dates: start: 20200123
  3. DECADRON 4 MG/1 ML SOLUZIONE INIETTABILE -3 FIALE DA 1 ML [Concomitant]
     Indication: ANTIINFLAMMATORY THERAPY
     Dosage: 8MG
     Route: 042
     Dates: start: 20200123
  4. ONDANSETRON HYDROCHLORIDE. [Concomitant]
     Active Substance: ONDANSETRON HYDROCHLORIDE
     Indication: PROPHYLAXIS OF NAUSEA AND VOMITING
     Dosage: 8MG
     Route: 042
     Dates: start: 20200123, end: 20200123
  5. TRASTUZUMAB. [Suspect]
     Active Substance: TRASTUZUMAB
     Indication: BREAST CANCER STAGE IV
     Dosage: 330MG
     Route: 041
     Dates: start: 20190828
  6. CARBOPLATINO TEVA 10 MG/ML [Suspect]
     Active Substance: CARBOPLATIN
     Indication: BREAST CANCER STAGE IV
     Dosage: 254MG
     Route: 041
     Dates: start: 20190828
  7. IVEMEND 150 MG POWDER FOR SOLUTION FOR INFUSION [Concomitant]
     Indication: PROPHYLAXIS OF NAUSEA AND VOMITING
     Dosage: 150MG
     Route: 042
     Dates: start: 20200123, end: 20200123

REACTIONS (4)
  - Tachycardia [Recovered/Resolved]
  - Skin reaction [Recovered/Resolved]
  - Pruritus [Recovered/Resolved]
  - Throat tightness [Recovered/Resolved]

NARRATIVE: CASE EVENT DATE: 20200123
